FAERS Safety Report 25281412 (Version 1)
Quarter: 2025Q2

REPORT INFORMATION
  Report Type: Report from Study
  Country: CN (occurrence: CN)
  Receive Date: 20250508
  Receipt Date: 20250508
  Transmission Date: 20250716
  Serious: Yes (Other)
  Sender: ABBVIE
  Company Number: CN-ABBVIE-6268780

PATIENT

DRUGS (2)
  1. FENOFIBRATE [Suspect]
     Active Substance: FENOFIBRATE
     Indication: Primary biliary cholangitis
     Dosage: ADMINISTERED IN 2-3 DIVIDED DOSES
     Route: 048
  2. URSODIOL [Suspect]
     Active Substance: URSODIOL
     Indication: Primary biliary cholangitis
     Dosage: ADMINISTERED IN 2-3 DIVIDED DOSES
     Route: 048

REACTIONS (3)
  - Drug-induced liver injury [Unknown]
  - Off label use [Unknown]
  - Dyspepsia [Recovered/Resolved]
